FAERS Safety Report 9976735 (Version 1)
Quarter: 2014Q1

REPORT INFORMATION
  Report Type: Report from Study
  Country: US (occurrence: US)
  Receive Date: 20140306
  Receipt Date: 20140306
  Transmission Date: 20141002
  Serious: No
  Sender: FDA-Public Use
  Company Number: US-ABBVIE-13P-163-1166053-00

PATIENT
  Age: 59 Year
  Sex: Female

DRUGS (18)
  1. HUMIRA [Suspect]
     Indication: RHEUMATOID ARTHRITIS
     Dates: start: 20130903
  2. HUMIRA [Suspect]
     Dates: start: 20131031
  3. METHOTREXATE [Concomitant]
     Indication: PRODUCT USED FOR UNKNOWN INDICATION
     Dosage: WEEKLY ON MONDAYS
  4. FOLIC ACID [Concomitant]
     Indication: PRODUCT USED FOR UNKNOWN INDICATION
  5. METOPROLOL [Concomitant]
     Indication: PRODUCT USED FOR UNKNOWN INDICATION
  6. PLAQUENIL [Concomitant]
     Indication: PRODUCT USED FOR UNKNOWN INDICATION
  7. OXYCONTIN [Concomitant]
     Indication: PRODUCT USED FOR UNKNOWN INDICATION
  8. ALPRAZOLAM [Concomitant]
     Indication: ANXIETY
     Dosage: AS NEEDED
  9. SERTRALINE [Concomitant]
     Indication: PRODUCT USED FOR UNKNOWN INDICATION
  10. RISPERIDONE [Concomitant]
     Indication: PRODUCT USED FOR UNKNOWN INDICATION
  11. LUNESTA [Concomitant]
     Indication: PRODUCT USED FOR UNKNOWN INDICATION
  12. MULTIVITAMIN [Concomitant]
     Indication: PRODUCT USED FOR UNKNOWN INDICATION
     Dosage: EVERY DAY
  13. ASPIRIN (E.C.) [Concomitant]
     Indication: PRODUCT USED FOR UNKNOWN INDICATION
  14. VITAMIN C [Concomitant]
     Indication: PRODUCT USED FOR UNKNOWN INDICATION
  15. LORATADINE [Concomitant]
     Indication: PRODUCT USED FOR UNKNOWN INDICATION
  16. VITAMIN D [Concomitant]
     Indication: PRODUCT USED FOR UNKNOWN INDICATION
     Dosage: WEEKLY
  17. CALCIUM [Concomitant]
     Indication: PRODUCT USED FOR UNKNOWN INDICATION
  18. OMEGA 3 [Concomitant]
     Indication: PRODUCT USED FOR UNKNOWN INDICATION

REACTIONS (16)
  - Weight increased [Not Recovered/Not Resolved]
  - Swelling [Not Recovered/Not Resolved]
  - Arthralgia [Unknown]
  - Gait disturbance [Not Recovered/Not Resolved]
  - Oedema peripheral [Not Recovered/Not Resolved]
  - Arthritis [Not Recovered/Not Resolved]
  - Lower respiratory tract infection [Unknown]
  - Influenza [Unknown]
  - Hyperhidrosis [Unknown]
  - Asthenia [Unknown]
  - Aphonia [Unknown]
  - Oedema peripheral [Unknown]
  - Oedema peripheral [Unknown]
  - Arthralgia [Unknown]
  - Arthralgia [Unknown]
  - Back pain [Unknown]
